FAERS Safety Report 8446636-2 (Version None)
Quarter: 2012Q2

REPORT INFORMATION
  Report Type: 
  Country: None (occurrence: None)
  Receive Date: 20120619
  Receipt Date: 20120608
  Transmission Date: 20120825
  Serious: No
  Sender: FDA-Public Use
  Company Number: US-BIOGENIDEC-2007BI017680

PATIENT
  Sex: Female
  Weight: 47 kg

DRUGS (7)
  1. AVONEX [Concomitant]
     Indication: MULTIPLE SCLEROSIS
     Route: 030
  2. PRILOSEC [Concomitant]
     Indication: PRODUCT USED FOR UNKNOWN INDICATION
     Dates: start: 20100101
  3. TYSABRI [Suspect]
     Indication: MULTIPLE SCLEROSIS
     Route: 042
     Dates: start: 20070413, end: 20100913
  4. DITROPAN [Concomitant]
     Indication: PRODUCT USED FOR UNKNOWN INDICATION
  5. URECHOLINE [Concomitant]
     Indication: PRODUCT USED FOR UNKNOWN INDICATION
  6. PROZAC [Concomitant]
     Indication: PRODUCT USED FOR UNKNOWN INDICATION
  7. SYNTHROID [Concomitant]
     Indication: PRODUCT USED FOR UNKNOWN INDICATION

REACTIONS (29)
  - INSOMNIA [None]
  - DEPRESSED MOOD [None]
  - BLINDNESS UNILATERAL [None]
  - FALL [None]
  - HAEMORRHAGE [None]
  - PAIN IN EXTREMITY [None]
  - DRUG INEFFECTIVE [None]
  - DIARRHOEA [None]
  - MULTIPLE FRACTURES [None]
  - UPPER LIMB FRACTURE [None]
  - LIGAMENT SPRAIN [None]
  - DYSSTASIA [None]
  - DRUG SPECIFIC ANTIBODY PRESENT [None]
  - URINARY INCONTINENCE [None]
  - FOOT FRACTURE [None]
  - ABASIA [None]
  - CHEST INJURY [None]
  - GAIT DISTURBANCE [None]
  - MICTURITION URGENCY [None]
  - RIB FRACTURE [None]
  - EYE DISORDER [None]
  - CONTUSION [None]
  - URINARY TRACT INFECTION [None]
  - MULTIPLE SCLEROSIS [None]
  - BALANCE DISORDER [None]
  - HYPOAESTHESIA [None]
  - BONE DISORDER [None]
  - PNEUMONIA [None]
  - MUSCULOSKELETAL DISORDER [None]
